FAERS Safety Report 5378629-6 (Version None)
Quarter: 2007Q3

REPORT INFORMATION
  Report Type: 
  Country: None (occurrence: None)
  Receive Date: 20070702
  Receipt Date: 20070622
  Transmission Date: 20080115
  Serious: Yes (Other)
  Sender: FDA-Public Use
  Company Number: 2007AL002537

PATIENT
  Age: 48 Year
  Sex: Male

DRUGS (1)
  1. DICLOFENAC [Suspect]
     Indication: PAIN IN EXTREMITY
     Dosage: 50 MG;QD;PO
     Route: 048
     Dates: start: 20061001

REACTIONS (6)
  - ABDOMINAL PAIN UPPER [None]
  - DYSGEUSIA [None]
  - DYSPEPSIA [None]
  - MALAISE [None]
  - PAIN [None]
  - VOMITING [None]
